FAERS Safety Report 14224127 (Version 3)
Quarter: 2017Q4

REPORT INFORMATION
  Report Type: Spontaneous
  Country: IT (occurrence: IT)
  Receive Date: 20171126
  Receipt Date: 20171220
  Transmission Date: 20180321
  Serious: Yes (Hospitalization, Other)
  Sender: FDA-Public Use
  Company Number: IT-MYLANLABS-2017M1073725

PATIENT
  Age: 59 Year
  Sex: Female

DRUGS (8)
  1. TRAZODONE [Concomitant]
     Active Substance: TRAZODONE HYDROCHLORIDE
     Indication: MAJOR DEPRESSION
  2. TRAZODONE [Concomitant]
     Active Substance: TRAZODONE HYDROCHLORIDE
     Indication: MAJOR DEPRESSION
     Dosage: 75 MG, QD
     Route: 065
  3. ALPRAZOLAM. [Concomitant]
     Active Substance: ALPRAZOLAM
     Indication: MAJOR DEPRESSION
  4. SERTRALINE [Suspect]
     Active Substance: SERTRALINE HYDROCHLORIDE
     Indication: MAJOR DEPRESSION
  5. FLURAZEPAM [Concomitant]
     Active Substance: FLURAZEPAM\FLURAZEPAM HYDROCHLORIDE
     Indication: MAJOR DEPRESSION
  6. FLURAZEPAM [Concomitant]
     Active Substance: FLURAZEPAM\FLURAZEPAM HYDROCHLORIDE
     Indication: MAJOR DEPRESSION
     Dosage: 30 MG, QD
     Route: 065
  7. SERTRALINE [Suspect]
     Active Substance: SERTRALINE HYDROCHLORIDE
     Indication: MAJOR DEPRESSION
     Dosage: 300 MG, QD
     Route: 065
  8. ALPRAZOLAM. [Concomitant]
     Active Substance: ALPRAZOLAM
     Indication: MAJOR DEPRESSION
     Dosage: 2 MG, QD
     Route: 065

REACTIONS (6)
  - Suicide attempt [Recovered/Resolved]
  - Psychotic symptom [Recovered/Resolved]
  - Affective disorder [Recovered/Resolved]
  - Overdose [Recovered/Resolved]
  - Hallucination, auditory [Recovered/Resolved]
  - Delusion [Recovered/Resolved]
